FAERS Safety Report 7069849-3 (Version None)
Quarter: 2010Q4

REPORT INFORMATION
  Report Type: 
  Country: None (occurrence: None)
  Receive Date: 20101028
  Receipt Date: 20100816
  Transmission Date: 20110411
  Serious: No
  Sender: FDA-Public Use
  Company Number: US-WYE-H16090210

PATIENT
  Age: 81 Year
  Weight: 67.19 kg

DRUGS (6)
  1. ADVIL [Suspect]
     Indication: NECK PAIN
     Dosage: 2 TABLETS DAILY TO TWICE PER DAY
     Route: 048
     Dates: start: 20100620
  2. VITAMIN TAB [Concomitant]
  3. VESICARE [Concomitant]
  4. OMEPRAZOLE [Concomitant]
  5. TYLENOL-500 [Suspect]
     Indication: NECK PAIN
     Dosage: TOOK TWO
     Route: 048
     Dates: start: 20100620, end: 20100620
  6. ACTONEL [Concomitant]

REACTIONS (1)
  - DRUG INEFFECTIVE [None]
